FAERS Safety Report 6657775-0 (Version None)
Quarter: 2010Q1

REPORT INFORMATION
  Report Type: 
  Country: None (occurrence: None)
  Receive Date: 20100330
  Receipt Date: 20100223
  Transmission Date: 20100710
  Serious: No
  Sender: FDA-Public Use
  Company Number: US-TYCO HEALTHCARE/MALLINCKRODT-T201000755

PATIENT
  Age: 48 Year
  Sex: Male

DRUGS (1)
  1. METHADOSE [Suspect]
     Dosage: UNK

REACTIONS (3)
  - COORDINATION ABNORMAL [None]
  - SWOLLEN TONGUE [None]
  - VOMITING [None]
